FAERS Safety Report 10386324 (Version 2)
Quarter: 2014Q4

REPORT INFORMATION
  Report Type: Report from Study
  Country: DE (occurrence: DE)
  Receive Date: 20140815
  Receipt Date: 20141223
  Transmission Date: 20150528
  Serious: Yes (Death)
  Sender: FDA-Public Use
  Company Number: DE-BEH-2014044418

PATIENT
  Age: 52 Year
  Sex: Female
  Weight: 70 kg

DRUGS (4)
  1. HIZENTRA [Suspect]
     Active Substance: HUMAN IMMUNOGLOBULIN G
     Dosage: TOTAL DOSE/WEEK: 40 MG/KG/WEEK, TOTAL INJECTIONS VOLUME/ WEEK: 80 ML/WEEK
     Route: 058
     Dates: start: 20130422
  2. HIZENTRA [Suspect]
     Active Substance: HUMAN IMMUNOGLOBULIN G
     Dosage: TOTAL DOSE: 40 MG/KG/WEEK; TOTAL INJECTION VOLUME: 80 ML/WEEK;
     Route: 058
     Dates: start: 20130712
  3. HIZENTRA [Suspect]
     Active Substance: HUMAN IMMUNOGLOBULIN G
     Indication: IMMUNODEFICIENCY COMMON VARIABLE
     Dosage: TOTAL DOSE: 40 MG/KG/WEEK; TOTAL INJECTION VOLUME: 80 ML/WEEK
     Route: 058
     Dates: start: 20131016
  4. HIZENTRA [Suspect]
     Active Substance: HUMAN IMMUNOGLOBULIN G
     Dosage: DOSE: 80
     Dates: start: 20120116

REACTIONS (2)
  - Atypical pneumonia [Fatal]
  - Sepsis [Fatal]
